FAERS Safety Report 8811155 (Version 5)
Quarter: 2015Q3

REPORT INFORMATION
  Report Type: Report from Study
  Country: ZA (occurrence: ZA)
  Receive Date: 20120927
  Receipt Date: 20150818
  Transmission Date: 20151125
  Serious: Yes (Hospitalization, Other)
  Sender: FDA-Public Use
  Company Number: PHHY2012ZA083753

PATIENT
  Sex: Female

DRUGS (7)
  1. ACLASTA [Suspect]
     Active Substance: ZOLEDRONIC ACID
     Dosage: 1 DF (5 MG/100 ML), UNK
     Route: 065
     Dates: start: 201309
  2. ACLASTA [Suspect]
     Active Substance: ZOLEDRONIC ACID
     Dosage: 1 DF (5 MG/100 ML), UNK
     Route: 065
     Dates: start: 201408
  3. ACLASTA [Suspect]
     Active Substance: ZOLEDRONIC ACID
     Dosage: 1 DF (5 MG/100 ML), UNK
     Route: 042
     Dates: start: 201209
  4. ACLASTA [Suspect]
     Active Substance: ZOLEDRONIC ACID
     Indication: OSTEOPOROSIS
     Dosage: 1 DF (5 MG/100 ML), UNK
     Route: 042
     Dates: start: 2010
  5. ELTROXIN [Concomitant]
     Active Substance: LEVOTHYROXINE
     Indication: PRODUCT USED FOR UNKNOWN INDICATION
     Route: 065
  6. CALCIUM [Concomitant]
     Active Substance: CALCIUM
     Indication: PRODUCT USED FOR UNKNOWN INDICATION
     Route: 065
  7. ACLASTA [Suspect]
     Active Substance: ZOLEDRONIC ACID
     Dosage: 1 DF (5 MG/100 ML), UNK
     Route: 042
     Dates: start: 201104

REACTIONS (24)
  - Foot fracture [Unknown]
  - Back pain [Unknown]
  - Abasia [Unknown]
  - Poor venous access [Unknown]
  - Head banging [Unknown]
  - Ear pain [Unknown]
  - Drug ineffective [Unknown]
  - Pelvic pain [Unknown]
  - Feeling abnormal [Unknown]
  - Malaise [Unknown]
  - Radius fracture [Unknown]
  - Sciatica [Unknown]
  - Bone disorder [Unknown]
  - Multiple fractures [Unknown]
  - Intervertebral disc degeneration [Unknown]
  - Pelvic fracture [Unknown]
  - Hand fracture [Unknown]
  - Small intestinal obstruction [Unknown]
  - Balance disorder [Unknown]
  - Dizziness [Unknown]
  - Fall [Unknown]
  - Tendon rupture [Unknown]
  - Dysphagia [Unknown]
  - Osteopenia [Unknown]

NARRATIVE: CASE EVENT DATE: 2010
